FAERS Safety Report 5681563-5 (Version None)
Quarter: 2008Q1

REPORT INFORMATION
  Report Type: 
  Country: None (occurrence: None)
  Receive Date: 20080326
  Receipt Date: 20070221
  Transmission Date: 20080703
  Serious: No
  Sender: FDA-Public Use
  Company Number: US-BAYER-US-2007-006190

PATIENT
  Age: 34 Year
  Sex: Female
  Weight: 57 kg

DRUGS (1)
  1. MIRENA [Suspect]
     Indication: CONTRACEPTION
     Route: 015
     Dates: start: 20060321, end: 20070208

REACTIONS (6)
  - ACNE [None]
  - ALOPECIA [None]
  - BACK PAIN [None]
  - FATIGUE [None]
  - LIBIDO DECREASED [None]
  - VULVOVAGINAL MYCOTIC INFECTION [None]
